FAERS Safety Report 11713196 (Version 3)
Quarter: 2015Q4

REPORT INFORMATION
  Report Type: Report from Study
  Country: FR (occurrence: FR)
  Receive Date: 20151109
  Receipt Date: 20151218
  Transmission Date: 20160304
  Serious: Yes (Other)
  Sender: FDA-Public Use
  Company Number: FR-BEH-2015055394

PATIENT
  Sex: Male

DRUGS (4)
  1. PLASMAPHERESIS [Suspect]
     Active Substance: UNSPECIFIED INGREDIENT
     Dosage: 10 CYCLES
  2. RITUXIMAB [Suspect]
     Active Substance: RITUXIMAB
  3. METHYLPREDNISOLONE. [Suspect]
     Active Substance: METHYLPREDNISOLONE
     Route: 042
  4. INTRAVENOUS IMMUNOGLOBULIN [Suspect]
     Active Substance: HUMAN IMMUNOGLOBULIN G
     Indication: TRANSPLANT REJECTION

REACTIONS (3)
  - Drug ineffective for unapproved indication [Unknown]
  - Transplant rejection [Unknown]
  - Complications of transplanted heart [Unknown]
